FAERS Safety Report 5733546-4 (Version None)
Quarter: 2008Q2

REPORT INFORMATION
  Report Type: 
  Country: None (occurrence: None)
  Receive Date: 20080509
  Receipt Date: 20080502
  Transmission Date: 20081010
  Serious: No
  Sender: FDA-Public Use
  Company Number: US-BAXTER-2008BH004621

PATIENT
  Sex: Female

DRUGS (2)
  1. HEPARIN SODIUM [Suspect]
     Indication: DRUG USE FOR UNKNOWN INDICATION
     Dosage: DOSE UNIT:UNKNOWN
     Route: 065
     Dates: start: 19990101
  2. HEPARIN SODIUM [Suspect]
     Dosage: DOSE UNIT:UNKNOWN
     Route: 065
     Dates: start: 20000401, end: 20000501

REACTIONS (14)
  - ABDOMINAL PAIN UPPER [None]
  - BLOOD PRESSURE DECREASED [None]
  - CHEST PAIN [None]
  - DRUG EXPOSURE DURING PREGNANCY [None]
  - DRY EYE [None]
  - DRY THROAT [None]
  - DYSPHAGIA [None]
  - HAEMOGLOBIN INCREASED [None]
  - HYPERHIDROSIS [None]
  - HYPOAESTHESIA [None]
  - NAUSEA [None]
  - PALPITATIONS [None]
  - PRURITUS [None]
  - RASH [None]
